FAERS Safety Report 10112299 (Version 2)
Quarter: 2014Q2

REPORT INFORMATION
  Report Type: Spontaneous
  Country: JP (occurrence: JP)
  Receive Date: 20140425
  Receipt Date: 20140505
  Transmission Date: 20141212
  Serious: Yes (Hospitalization)
  Sender: FDA-Public Use
  Company Number: JP-009507513-1404JPN011118

PATIENT
  Sex: Female

DRUGS (4)
  1. FOSAMAC TABLETS 35MG [Suspect]
     Dosage: DAILY DOSE UNKNOWN
     Route: 048
  2. FOSAMAC TABLETS 35MG [Suspect]
     Dosage: DAILY DOSE UNKNOWN
     Route: 048
     Dates: start: 201312
  3. [THERAPY UNSPECIFIED] [Concomitant]
     Indication: ATRIAL FIBRILLATION
     Dosage: POR,DAILY DOSE UNKNOWN
     Route: 048
  4. [THERAPY UNSPECIFIED] [Concomitant]
     Dosage: DAILY DOSE UNKNOWN,POR
     Route: 048

REACTIONS (1)
  - Atrial fibrillation [Unknown]
